FAERS Safety Report 7137728-9 (Version None)
Quarter: 2010Q4

REPORT INFORMATION
  Report Type: 
  Country: None (occurrence: None)
  Receive Date: 20101206
  Receipt Date: 20101123
  Transmission Date: 20110411
  Serious: Yes (Disabling)
  Sender: FDA-Public Use
  Company Number: PHHY2010IT79696

PATIENT
  Sex: Female

DRUGS (1)
  1. ZOMETA [Suspect]
     Indication: BREAST CANCER
     Dosage: 4MG+5ML,  4MG EVERY 28 DAYS
     Route: 042
     Dates: start: 20090901

REACTIONS (1)
  - OSTEONECROSIS OF JAW [None]
